FAERS Safety Report 9550904 (Version 2)
Quarter: 2018Q4

REPORT INFORMATION
  Report Type: Report from Study
  Country: US (occurrence: US)
  Receive Date: 20130924
  Receipt Date: 20181227
  Transmission Date: 20190205
  Serious: Yes (Other)
  Sender: FDA-Public Use
  Company Number: US-SANOFI-AVENTIS-2013SA041355

PATIENT
  Age: 44 Year
  Sex: Female
  Weight: 70.3 kg

DRUGS (1)
  1. TERIFLUNOMIDE. [Suspect]
     Active Substance: TERIFLUNOMIDE
     Indication: MULTIPLE SCLEROSIS
     Dosage: 14 MG,QD
     Route: 048
     Dates: start: 201304

REACTIONS (16)
  - Tooth disorder [Not Recovered/Not Resolved]
  - Hypertension [Recovering/Resolving]
  - Carpal tunnel syndrome [Unknown]
  - Appendix disorder [Recovered/Resolved]
  - Pain in extremity [Unknown]
  - Nodule [Recovering/Resolving]
  - Diarrhoea [Not Recovered/Not Resolved]
  - Back pain [Not Recovered/Not Resolved]
  - Pharyngitis streptococcal [Recovering/Resolving]
  - Anxiety [Not Recovered/Not Resolved]
  - Swelling [Recovering/Resolving]
  - Hypoaesthesia [Not Recovered/Not Resolved]
  - Uterine pain [Not Recovered/Not Resolved]
  - Toothache [Unknown]
  - Tooth disorder [Unknown]
  - Tooth abscess [Unknown]

NARRATIVE: CASE EVENT DATE: 20130821
